FAERS Safety Report 9419763 (Version 3)
Quarter: 2013Q3

REPORT INFORMATION
  Report Type: Spontaneous
  Country: JP (occurrence: JP)
  Receive Date: 20130725
  Receipt Date: 20130816
  Transmission Date: 20140515
  Serious: Yes (Other)
  Sender: FDA-Public Use
  Company Number: JP-BAYER-2013-087729

PATIENT
  Age: 38 Year
  Sex: Male
  Weight: 71 kg

DRUGS (9)
  1. NEXAVAR [Suspect]
     Indication: HEPATOCELLULAR CARCINOMA
     Dosage: 400 MG, BID
     Route: 048
     Dates: start: 20110713, end: 20130117
  2. METHYCOBAL [Concomitant]
     Dosage: DAILY DOSE 1500 ?G
     Route: 048
  3. URSO [Concomitant]
     Dosage: DAILY DOSE 600 MG
     Route: 048
  4. GASMOTIN [Concomitant]
     Dosage: DAILY DOSE 15 MG
     Route: 048
  5. CYSTANIN [Concomitant]
     Dosage: DAILY DOSE 300 MG
     Route: 048
  6. ZYRTEC [Concomitant]
     Dosage: DAILY DOSE 10 MG
     Route: 048
  7. OMEPRAL [Concomitant]
     Dosage: DAILY DOSE 10 MG
     Route: 048
  8. ADALAT CR [Concomitant]
     Dosage: DAILY DOSE 20 MG
     Route: 048
  9. BARACLUDE [Concomitant]
     Dosage: DAILY DOSE .5 MG
     Route: 048

REACTIONS (18)
  - Ascites [Recovered/Resolved]
  - Erosive oesophagitis [None]
  - Palmar-plantar erythrodysaesthesia syndrome [Recovered/Resolved]
  - Rash [Not Recovered/Not Resolved]
  - Epistaxis [Recovered/Resolved]
  - Eczema [Recovering/Resolving]
  - Diarrhoea [Recovered/Resolved]
  - Oedema peripheral [Recovering/Resolving]
  - Pyrexia [Recovering/Resolving]
  - Alopecia [Recovered/Resolved]
  - Oedema peripheral [Recovered/Resolved]
  - Upper respiratory tract inflammation [Recovering/Resolving]
  - Hypophosphataemia [Recovering/Resolving]
  - Hepatic function abnormal [Not Recovered/Not Resolved]
  - Amylase increased [Not Recovered/Not Resolved]
  - Pain [Recovered/Resolved]
  - Anaemia [Not Recovered/Not Resolved]
  - Lipase increased [Not Recovered/Not Resolved]
